FAERS Safety Report 8606150 (Version 2)
Quarter: 2013Q2

REPORT INFORMATION
  Report Type: Spontaneous
  Country: US (occurrence: US)
  Receive Date: 20120608
  Receipt Date: 20130502
  Transmission Date: 20140414
  Serious: Yes (Other)
  Sender: FDA-Public Use
  Company Number: US-ASTRAZENECA-2011SE39804

PATIENT
  Age: 83 Year
  Sex: Female

DRUGS (3)
  1. ATACAND [Suspect]
     Route: 048
  2. NEXIUM [Suspect]
     Route: 048
  3. CRESTOR [Suspect]
     Route: 048

REACTIONS (3)
  - Carpal tunnel syndrome [Unknown]
  - Adverse event [Unknown]
  - Drug dose omission [Unknown]
